FAERS Safety Report 23694048 (Version 1)
Quarter: 2024Q2

REPORT INFORMATION
  Report Type: Spontaneous
  Country: US (occurrence: US)
  Receive Date: 20240401
  Receipt Date: 20240401
  Transmission Date: 20240716
  Serious: No
  Sender: FDA-Public Use
  Company Number: US-PERRIGO-24US001624

PATIENT
  Age: 82 Year
  Sex: Male
  Weight: 80.726 kg

DRUGS (4)
  1. ACETAMINOPHEN [Suspect]
     Active Substance: ACETAMINOPHEN
     Indication: Spinal osteoarthritis
     Dosage: 650 MG, Q8H
     Route: 048
     Dates: start: 202208, end: 20240123
  2. ACETAMINOPHEN [Suspect]
     Active Substance: ACETAMINOPHEN
     Dosage: 650 MG, Q8H
     Route: 048
     Dates: start: 20240130, end: 20240205
  3. ACETAMINOPHEN [Suspect]
     Active Substance: ACETAMINOPHEN
     Dosage: 650 MG, Q12H
     Route: 048
     Dates: start: 20240206
  4. OXYCODONE [Concomitant]
     Active Substance: OXYCODONE\OXYCODONE HYDROCHLORIDE
     Indication: Spinal osteoarthritis
     Dosage: UNKNOWN, Q3H
     Route: 065

REACTIONS (4)
  - Rash [Recovering/Resolving]
  - Expired product administered [Unknown]
  - Underdose [Unknown]
  - Incorrect product administration duration [Unknown]

NARRATIVE: CASE EVENT DATE: 20220801
